FAERS Safety Report 9825533 (Version 1)
Quarter: 2014Q1

REPORT INFORMATION
  Report Type: Spontaneous
  Country: US (occurrence: None)
  Receive Date: 20140115
  Receipt Date: 20140115
  Transmission Date: 20141002
  Serious: Yes (Other)
  Sender: FDA-Public Use
  Company Number: None

PATIENT
  Age: 43 Year
  Sex: Female
  Weight: 58.51 kg

DRUGS (6)
  1. SORIATANE [Suspect]
     Indication: PSORIASIS
     Route: 048
     Dates: start: 20130307, end: 20130510
  2. DOCUSATE [Concomitant]
  3. ESTRADIOL [Concomitant]
  4. GABAPENTIN [Concomitant]
  5. KCL [Concomitant]
  6. TOPIRAMATE [Concomitant]

REACTIONS (1)
  - Hyperthyroidism [None]
